FAERS Safety Report 20462046 (Version 1)
Quarter: 2022Q1

REPORT INFORMATION
  Report Type: Spontaneous
  Country: US (occurrence: None)
  Receive Date: 20220211
  Receipt Date: 20220211
  Transmission Date: 20220424
  Serious: Yes (Other)
  Sender: FDA-Public Use
  Company Number: None

PATIENT
  Age: 66 Year
  Sex: Male
  Weight: 91.35 kg

DRUGS (5)
  1. APALUTAMIDE [Suspect]
     Active Substance: APALUTAMIDE
     Indication: Prostate cancer
     Dosage: FREQUENCY : DAILY;?
     Route: 048
     Dates: start: 20220204, end: 20220204
  2. flecainide 50mg PO BID [Concomitant]
     Dates: start: 20190626
  3. Amlodipine 5mg PO daily [Concomitant]
     Dates: start: 20180726
  4. Losartan 25mg PO daily [Concomitant]
     Dates: start: 20200624
  5. Metoprolol succinate 25mg daily [Concomitant]
     Dates: start: 20190725

REACTIONS (1)
  - Symmetrical drug-related intertriginous and flexural exanthema [None]

NARRATIVE: CASE EVENT DATE: 20220204
